FAERS Safety Report 4353901-7 (Version None)
Quarter: 2004Q2

REPORT INFORMATION
  Report Type: 
  Country: None (occurrence: None)
  Receive Date: 20040506
  Receipt Date: 20040428
  Transmission Date: 20050107
  Serious: Yes (Hospitalization)
  Sender: FDA-Public Use
  Company Number: PHBS2004US05848

PATIENT
  Age: 63 Year
  Sex: Male

DRUGS (10)
  1. ZOLEDRONATE [Suspect]
     Indication: METASTASES TO BONE
     Dosage: 4 MG, ONCE/SINGLE
     Route: 042
  2. PANTOPRAZOLE [Suspect]
  3. ESTRAMUSTINE [Concomitant]
  4. TAXOTERE [Concomitant]
  5. MORPHINE SULFATE [Concomitant]
  6. HYDROMORPHONE [Concomitant]
  7. CELECOXIB [Concomitant]
  8. EPOGEN [Concomitant]
  9. METOCLOPRAMIDE [Concomitant]
  10. WARFARIN SODIUM [Concomitant]

REACTIONS (9)
  - DYSPHAGIA [None]
  - ELECTROCARDIOGRAM QT PROLONGED [None]
  - HYPERPARATHYROIDISM SECONDARY [None]
  - HYPOCALCAEMIA [None]
  - HYPOPHOSPHATAEMIA [None]
  - LARYNGOSPASM [None]
  - NAUSEA [None]
  - TETANY [None]
  - VITAMIN D DEFICIENCY [None]
